FAERS Safety Report 24943012 (Version 1)
Quarter: 2025Q1

REPORT INFORMATION
  Report Type: Spontaneous
  Country: FR (occurrence: FR)
  Receive Date: 20250207
  Receipt Date: 20250207
  Transmission Date: 20250408
  Serious: Yes (Life-Threatening, Hospitalization)
  Sender: MYLAN
  Company Number: None

PATIENT
  Age: 24 Year
  Sex: Male
  Weight: 61.5 kg

DRUGS (4)
  1. FLUVOXAMINE [Interacting]
     Active Substance: FLUVOXAMINE
     Indication: Psychotic disorder
     Dosage: 100 MILLIGRAM, QD
     Route: 048
     Dates: start: 20241022, end: 20241118
  2. CLOZAPINE [Interacting]
     Active Substance: CLOZAPINE
     Indication: Behaviour disorder
     Dosage: 300 MILLIGRAM, QD (100MG MORNING AND 200MG EVENING)
     Route: 048
     Dates: start: 202401, end: 20241118
  3. VALPROATE SODIUM [Concomitant]
     Active Substance: VALPROATE SODIUM
     Route: 065
  4. AMISULPRIDE [Concomitant]
     Active Substance: AMISULPRIDE
     Route: 065

REACTIONS (2)
  - Encephalopathy [Recovered/Resolved]
  - Drug interaction [Recovered/Resolved]

NARRATIVE: CASE EVENT DATE: 20241022
